FAERS Safety Report 18276586 (Version 1)
Quarter: 2020Q3

REPORT INFORMATION
  Report Type: Spontaneous
  Country: SE (occurrence: SE)
  Receive Date: 20200917
  Receipt Date: 20200917
  Transmission Date: 20201103
  Serious: Yes (Other)
  Sender: FDA-Public Use
  Company Number: SE-BAUSCH-BL-2020-026173

PATIENT
  Age: 40 Year
  Sex: Female
  Weight: 74 kg

DRUGS (14)
  1. METOCLOPRAMIDE. [Suspect]
     Active Substance: METOCLOPRAMIDE
     Indication: PROPHYLAXIS OF NAUSEA AND VOMITING
     Route: 065
  2. EPIRUBICIN [Suspect]
     Active Substance: EPIRUBICIN
     Indication: NEOADJUVANT THERAPY
     Dosage: ADMINISTERED INTRAVENOUSLY OVER 2 HOURS
     Route: 042
  3. BETAMETHASONE. [Concomitant]
     Active Substance: BETAMETHASONE
     Dosage: ON DAY 5
     Route: 048
  4. METOPROLOL. [Concomitant]
     Active Substance: METOPROLOL
     Indication: LONG QT SYNDROME
     Dosage: SLOW?RELEASE (FOR MORE THAN 15 YEARS)
  5. METOPROLOL. [Concomitant]
     Active Substance: METOPROLOL
     Dosage: INCREASED (SLOW?RELEASE FORM)
  6. CYCLOPHOSPHAMIDE. [Concomitant]
     Active Substance: CYCLOPHOSPHAMIDE
     Indication: NEOADJUVANT THERAPY
     Dosage: INFUSED OVER 1 HOUR
     Route: 042
  7. APREPITANT. [Concomitant]
     Active Substance: APREPITANT
     Indication: PROPHYLAXIS OF NAUSEA AND VOMITING
  8. BETAMETHASONE. [Concomitant]
     Active Substance: BETAMETHASONE
     Dosage: ON DAY 2
     Route: 048
  9. CYCLOPHOSPHAMIDE. [Concomitant]
     Active Substance: CYCLOPHOSPHAMIDE
     Indication: INVASIVE DUCTAL BREAST CARCINOMA
     Route: 042
  10. METOPROLOL. [Concomitant]
     Active Substance: METOPROLOL
     Dosage: INCREASED (SLOW?RELEASE FORM)
  11. BETAMETHASONE. [Concomitant]
     Active Substance: BETAMETHASONE
     Indication: LONG QT SYNDROME
     Dosage: ON DAY 1
     Route: 048
  12. BETAMETHASONE. [Concomitant]
     Active Substance: BETAMETHASONE
     Dosage: ON DAY 4
     Route: 048
  13. EPIRUBICIN [Suspect]
     Active Substance: EPIRUBICIN
     Indication: INVASIVE DUCTAL BREAST CARCINOMA
     Dosage: SINGLE DOSE
     Route: 042
  14. BETAMETHASONE. [Concomitant]
     Active Substance: BETAMETHASONE
     Dosage: ON DAY 3
     Route: 048

REACTIONS (1)
  - Electrocardiogram QT prolonged [Unknown]
